FAERS Safety Report 4935126-7 (Version None)
Quarter: 2006Q1

REPORT INFORMATION
  Report Type: 
  Country: None (occurrence: None)
  Receive Date: 20060306
  Receipt Date: 20060306
  Transmission Date: 20060701
  Serious: No
  Sender: FDA-Public Use
  Company Number: None

PATIENT
  Age: 29 Year
  Sex: Male
  Weight: 88.4514 kg

DRUGS (2)
  1. ZOLOFT [Suspect]
     Indication: DEPRESSION
     Dosage: 100 MG DAILY PO
     Route: 048
     Dates: start: 20010301, end: 20060115
  2. ZOLOFT [Suspect]
     Indication: OBSESSIVE-COMPULSIVE DISORDER
     Dosage: 100 MG DAILY PO
     Route: 048
     Dates: start: 20010301, end: 20060115

REACTIONS (6)
  - ASTHENIA [None]
  - DISORIENTATION [None]
  - DIZZINESS [None]
  - DRUG DOSE OMISSION [None]
  - PARAESTHESIA [None]
  - TREATMENT NONCOMPLIANCE [None]
